FAERS Safety Report 7408308-2 (Version None)
Quarter: 2011Q2

REPORT INFORMATION
  Report Type: 
  Country: None (occurrence: None)
  Receive Date: 20110412
  Receipt Date: 20110211
  Transmission Date: 20111010
  Serious: Yes (Other)
  Sender: FDA-Public Use
  Company Number: GB-KINGPHARMUSA00001-K201100373

PATIENT
  Age: 38 Year
  Sex: Male

DRUGS (2)
  1. ALSUMA [Suspect]
     Dosage: UNK
  2. LUSTRAL [Suspect]
     Dosage: 300 MG, UNK

REACTIONS (3)
  - OVERDOSE [None]
  - DRUG INTERACTION [None]
  - APPENDICITIS [None]
